FAERS Safety Report 25655301 (Version 1)
Quarter: 2025Q3

REPORT INFORMATION
  Report Type: Spontaneous
  Country: US (occurrence: US)
  Receive Date: 20250807
  Receipt Date: 20250807
  Transmission Date: 20251020
  Serious: No
  Sender: MERCK SHARP & DOHME LLC
  Company Number: US-009507513-2316258

PATIENT
  Sex: Male
  Weight: 67.1 kg

DRUGS (12)
  1. SOTATERCEPT [Suspect]
     Active Substance: SOTATERCEPT
  2. SOTATERCEPT [Suspect]
     Active Substance: SOTATERCEPT
  3. SOTATERCEPT [Suspect]
     Active Substance: SOTATERCEPT
  4. SOTATERCEPT [Suspect]
     Active Substance: SOTATERCEPT
  5. TYVASO DPI [Suspect]
     Active Substance: TREPROSTINIL
     Indication: Pulmonary arterial hypertension
     Dosage: 64  G, FOUR TIMES A DAY (QID) VIA INHALATION (IH) ROUTE
     Route: 055
     Dates: start: 20241204
  6. POTASSIUM CHLORIDE [Concomitant]
     Active Substance: POTASSIUM CHLORIDE
  7. MAGNESIUM OXIDE [Concomitant]
     Active Substance: MAGNESIUM OXIDE
  8. LASIX [Concomitant]
     Active Substance: FUROSEMIDE
  9. TADALAFIL [Concomitant]
     Active Substance: TADALAFIL
  10. OPSUMIT [Concomitant]
     Active Substance: MACITENTAN
  11. OXYGEN [Concomitant]
     Active Substance: OXYGEN
  12. TORSEMIDE [Concomitant]
     Active Substance: TORSEMIDE

REACTIONS (2)
  - Fatigue [Recovered/Resolved]
  - Headache [Recovered/Resolved]
